FAERS Safety Report 14372328 (Version 1)
Quarter: 2018Q1

REPORT INFORMATION
  Report Type: Other
  Country: DE (occurrence: DE)
  Receive Date: 20180110
  Receipt Date: 20180110
  Transmission Date: 20180509
  Serious: Yes (Other)
  Sender: FDA-Public Use
  Company Number: DE-LUPIN PHARMACEUTICALS INC.-2017-07812

PATIENT
  Age: 21 Year
  Sex: Female

DRUGS (5)
  1. LAMOTRIGINE. [Suspect]
     Active Substance: LAMOTRIGINE
     Indication: EPILEPSY
     Dosage: BEING CONSTANTLY INCREASED
     Route: 065
  2. VIMPAT [Suspect]
     Active Substance: LACOSAMIDE
     Indication: EPILEPSY
     Dosage: UNK
     Route: 065
  3. VIMPAT [Suspect]
     Active Substance: LACOSAMIDE
     Dosage: BEING CONSTANTLY INCREASED
     Route: 065
  4. BRIVIACT [Suspect]
     Active Substance: BRIVARACETAM
     Dosage: UNK
     Route: 065
  5. BRIVIACT [Suspect]
     Active Substance: BRIVARACETAM
     Indication: EPILEPSY
     Dosage: BEING CONSTANTLY INCREASED
     Route: 065

REACTIONS (3)
  - Separation anxiety disorder [Unknown]
  - Unevaluable event [Unknown]
  - Seizure [Unknown]
